FAERS Safety Report 6178319-6 (Version None)
Quarter: 2009Q2

REPORT INFORMATION
  Report Type: 
  Country: None (occurrence: None)
  Receive Date: 20090504
  Receipt Date: 20070725
  Transmission Date: 20091009
  Serious: No
  Sender: FDA-Public Use
  Company Number: US-ALEXION-A200700037

PATIENT

DRUGS (8)
  1. SOLIRIS [Suspect]
     Indication: PAROXYSMAL NOCTURNAL HAEMOGLOBINURIA
     Dosage: 600 MG, SINGLE
     Route: 042
     Dates: start: 20070703, end: 20070703
  2. SOLIRIS [Suspect]
     Dosage: 600 MG, SINGLE
     Route: 042
     Dates: start: 20070710, end: 20070710
  3. SOLIRIS [Suspect]
     Dosage: 600 MG, SINGLE
     Route: 042
     Dates: start: 20070717, end: 20070717
  4. SOLIRIS [Suspect]
     Dosage: 600 MG, SINGLE
     Route: 042
     Dates: start: 20070724, end: 20070724
  5. SOLIRIS [Suspect]
     Dosage: 900 MG, SINGLE
     Route: 042
     Dates: start: 20070731, end: 20070731
  6. PREDNISONE [Concomitant]
     Dosage: 10 MG, QD
     Route: 048
  7. COUMADIN [Concomitant]
     Dosage: 7.5 MG, QD
     Route: 048
  8. OXYCODONE [Concomitant]
     Dosage: 5 MG, PRN
     Route: 048

REACTIONS (1)
  - MYALGIA [None]
